FAERS Safety Report 5280564-9 (Version None)
Quarter: 2007Q1

REPORT INFORMATION
  Report Type: 
  Country: None (occurrence: None)
  Receive Date: 20061215
  Receipt Date: 20051123
  Transmission Date: 20070707
  Serious: Yes (Other)
  Sender: FDA-Public Use
  Company Number: HQWYE729429NOV05

PATIENT
  Age: 50 Year
  Sex: Female
  Weight: 54.48 kg

DRUGS (3)
  1. EFFEXOR XR [Suspect]
     Indication: DEPRESSION
     Dosage: 75 MG 2X PER 1 DAY, ORAL
     Route: 048
     Dates: start: 20051022, end: 20051119
  2. SYNTHROID [Concomitant]
  3. GEODON [Concomitant]

REACTIONS (11)
  - AGGRESSION [None]
  - CRYING [None]
  - DIARRHOEA [None]
  - DRUG WITHDRAWAL SYNDROME [None]
  - INSOMNIA [None]
  - MANIA [None]
  - NAUSEA [None]
  - NIGHT SWEATS [None]
  - SUICIDAL IDEATION [None]
  - THINKING ABNORMAL [None]
  - TINNITUS [None]
